FAERS Safety Report 7125924-6 (Version None)
Quarter: 2010Q4

REPORT INFORMATION
  Report Type: 
  Country: None (occurrence: None)
  Receive Date: 20101129
  Receipt Date: 20101115
  Transmission Date: 20110411
  Serious: Yes (Hospitalization)
  Sender: FDA-Public Use
  Company Number: DE-ASTRAZENECA-2010SE54726

PATIENT
  Age: 8782 Day
  Sex: Male

DRUGS (2)
  1. FASLODEX [Suspect]
  2. ETHANOL [Suspect]

REACTIONS (1)
  - ACCIDENTAL EXPOSURE [None]
